FAERS Safety Report 20346727 (Version 2)
Quarter: 2022Q3

REPORT INFORMATION
  Report Type: Spontaneous
  Country: US (occurrence: None)
  Receive Date: 20220118
  Receipt Date: 20220818
  Transmission Date: 20221027
  Serious: Yes (Other)
  Sender: FDA-Public Use
  Company Number: 2022A018434

PATIENT
  Age: 49 Year
  Sex: Female
  Weight: 78.5 kg

DRUGS (75)
  1. PRILOSEC [Suspect]
     Active Substance: OMEPRAZOLE MAGNESIUM
     Indication: Gastrooesophageal reflux disease
     Route: 048
     Dates: start: 2005, end: 2017
  2. PRILOSEC [Suspect]
     Active Substance: OMEPRAZOLE MAGNESIUM
     Indication: Gastrooesophageal reflux disease
     Route: 048
     Dates: start: 2005, end: 2017
  3. PRILOSEC [Suspect]
     Active Substance: OMEPRAZOLE MAGNESIUM
     Indication: Gastrooesophageal reflux disease
     Dosage: GENERIC
     Route: 065
     Dates: start: 2007
  4. PRILOSEC [Suspect]
     Active Substance: OMEPRAZOLE MAGNESIUM
     Indication: Gastrooesophageal reflux disease
     Dosage: GENERIC
     Route: 065
     Dates: start: 2007
  5. PROTONIX [Suspect]
     Active Substance: PANTOPRAZOLE SODIUM
     Indication: Gastrooesophageal reflux disease
     Route: 065
     Dates: start: 2010, end: 2015
  6. PROTONIX [Suspect]
     Active Substance: PANTOPRAZOLE SODIUM
     Indication: Gastrooesophageal reflux disease
     Route: 065
     Dates: start: 2010, end: 2015
  7. PROTONIX [Suspect]
     Active Substance: PANTOPRAZOLE SODIUM
     Indication: Gastrooesophageal reflux disease
     Dosage: GENERIC
     Route: 065
     Dates: start: 2012, end: 2018
  8. PROTONIX [Suspect]
     Active Substance: PANTOPRAZOLE SODIUM
     Indication: Gastrooesophageal reflux disease
     Dosage: GENERIC
     Route: 065
     Dates: start: 2012, end: 2018
  9. FUROSEMIDE [Concomitant]
     Active Substance: FUROSEMIDE
  10. CARVEDILOL [Concomitant]
     Active Substance: CARVEDILOL
  11. TRAZODONE [Concomitant]
     Active Substance: TRAZODONE HYDROCHLORIDE
  12. ALPRAZOLAM [Concomitant]
     Active Substance: ALPRAZOLAM
  13. SINGULAIR [Concomitant]
     Active Substance: MONTELUKAST SODIUM
  14. METHOTREXATE [Concomitant]
     Active Substance: METHOTREXATE
  15. ISOSORBIDE MONONITRATE [Concomitant]
     Active Substance: ISOSORBIDE MONONITRATE
  16. SYMBICCORT [Concomitant]
  17. LISINOPRIL [Concomitant]
     Active Substance: LISINOPRIL
  18. LEVOFLOXACIN [Concomitant]
     Active Substance: LEVOFLOXACIN
  19. PREDNISONE [Concomitant]
     Active Substance: PREDNISONE
  20. NYSTATIN [Concomitant]
     Active Substance: NYSTATIN
  21. AMIODARONE [Concomitant]
     Active Substance: AMIODARONE
  22. CARTIA [Concomitant]
  23. WARFARIN [Concomitant]
     Active Substance: WARFARIN
  24. DOXYCYCLINE HYCLATE [Concomitant]
     Active Substance: DOXYCYCLINE HYCLATE
  25. HYDROMET [Concomitant]
     Active Substance: HOMATROPINE METHYLBROMIDE\HYDROCODONE BITARTRATE
  26. PROAIR HFA [Concomitant]
     Active Substance: ALBUTEROL SULFATE
  27. LOSARTAN [Concomitant]
     Active Substance: LOSARTAN
  28. ENOXAPARIN [Concomitant]
     Active Substance: ENOXAPARIN
  29. CIPROFLOXACIN [Concomitant]
     Active Substance: CIPROFLOXACIN
  30. PHENAZOPYRIDINE [Concomitant]
     Active Substance: PHENAZOPYRIDINE
  31. OXYCODONE AND ACETAMINOPHEN [Concomitant]
     Active Substance: ACETAMINOPHEN\OXYCODONE HYDROCHLORIDE
  32. ACETAMINOPHEN\HYDROCODONE BITARTRATE [Concomitant]
     Active Substance: ACETAMINOPHEN\HYDROCODONE BITARTRATE
  33. CILOSTAZOL [Concomitant]
     Active Substance: CILOSTAZOL
  34. AVANDIA [Concomitant]
     Active Substance: ROSIGLITAZONE MALEATE
  35. FLUVIRIN NOS [Concomitant]
     Active Substance: INFLUENZA VIRUS VACCINE
  36. PNEUMOVAX 23 [Concomitant]
     Active Substance: PNEUMOCOCCAL VACCINE, POLYVALENT 23
  37. CYCLOBENZAPRINE [Concomitant]
     Active Substance: CYCLOBENZAPRINE
  38. PRISTIQ EXTENDED-RELEASE [Concomitant]
     Active Substance: DESVENLAFAXINE SUCCINATE
  39. CLONAZEPAM [Concomitant]
     Active Substance: CLONAZEPAM
  40. CELEBREX [Concomitant]
     Active Substance: CELECOXIB
  41. PROPOXYPHENE HYDROCHLORIDE [Concomitant]
     Active Substance: PROPOXYPHENE HYDROCHLORIDE
  42. FERROUS SULFATE [Concomitant]
     Active Substance: FERROUS SULFATE
  43. AMOXICILLIN [Concomitant]
     Active Substance: AMOXICILLIN
  44. VESICARE [Concomitant]
     Active Substance: SOLIFENACIN SUCCINATE
  45. CHANTIX [Concomitant]
     Active Substance: VARENICLINE TARTRATE
  46. BENICAR [Concomitant]
     Active Substance: OLMESARTAN MEDOXOMIL
  47. CHLORTHALIDONE [Concomitant]
     Active Substance: CHLORTHALIDONE
  48. FLUOXETINE [Concomitant]
     Active Substance: FLUOXETINE HYDROCHLORIDE
  49. ATROPINE SULFATE/DIHYDROMORPHINE [Concomitant]
  50. DIAZEPAM [Concomitant]
     Active Substance: DIAZEPAM
  51. HYDROCORTISONE\NEOMYCIN\POLYMYXIN B SULFATE [Concomitant]
     Active Substance: HYDROCORTISONE\NEOMYCIN\POLYMYXIN B SULFATE
  52. BUDEPRION XL [Concomitant]
     Active Substance: BUPROPION HYDROCHLORIDE
  53. AMLODIPINE-BENAZ [Concomitant]
  54. LOTREL [Concomitant]
     Active Substance: AMLODIPINE BESYLATE\BENAZEPRIL HYDROCHLORIDE
  55. AMBIEN [Concomitant]
     Active Substance: ZOLPIDEM TARTRATE
  56. CHROMAGEN [Concomitant]
     Active Substance: ASCORBIC ACID\CYANOCOBALAMIN\FERROUS ASPARTO GLYCINATE\FERROUS FUMARATE\FOLIC ACID\INTRINSIC FACTOR\
  57. NITROGLYCERIN [Concomitant]
     Active Substance: NITROGLYCERIN
  58. VIGAMOX [Concomitant]
     Active Substance: MOXIFLOXACIN HYDROCHLORIDE
  59. POLYETHYLENE GLYCOL [Concomitant]
     Active Substance: POLYETHYLENE GLYCOL
  60. PENICILLIN [Concomitant]
     Active Substance: PENICILLIN
  61. FELDENE [Concomitant]
     Active Substance: PIROXICAM
  62. VANCOMYCIN [Concomitant]
     Active Substance: VANCOMYCIN
  63. PRAVACHOL [Concomitant]
     Active Substance: PRAVASTATIN SODIUM
  64. HYDROCHLOROTHIAZIDE [Concomitant]
     Active Substance: HYDROCHLOROTHIAZIDE
  65. NOREPINEPHRINE [Concomitant]
     Active Substance: NOREPINEPHRINE
  66. COPIDOGREL [Concomitant]
  67. BENADRYL [Concomitant]
     Active Substance: DIPHENHYDRAMINE HYDROCHLORIDE
  68. TUMS [Concomitant]
     Active Substance: CALCIUM CARBONATE
  69. KAYEXALATE [Concomitant]
     Active Substance: SODIUM POLYSTYRENE SULFONATE
  70. DESVENLAFAXINE SUCCINATE [Concomitant]
     Active Substance: DESVENLAFAXINE SUCCINATE
  71. MORPHINE [Concomitant]
     Active Substance: MORPHINE
  72. SODIUM CHLORIDE [Concomitant]
     Active Substance: SODIUM CHLORIDE
  73. FIBERCON [Concomitant]
     Active Substance: CALCIUM POLYCARBOPHIL
  74. FOLIC ACID [Concomitant]
     Active Substance: FOLIC ACID
  75. FLAGYL [Concomitant]
     Active Substance: METRONIDAZOLE\METRONIDAZOLE HYDROCHLORIDE

REACTIONS (6)
  - Chronic kidney disease [Not Recovered/Not Resolved]
  - Acute kidney injury [Not Recovered/Not Resolved]
  - Renal failure [Unknown]
  - Renal tubular necrosis [Unknown]
  - Nephrogenic anaemia [Unknown]
  - Gastrooesophageal reflux disease [Not Recovered/Not Resolved]

NARRATIVE: CASE EVENT DATE: 20090101
